FAERS Safety Report 14836207 (Version 1)
Quarter: 2018Q2

REPORT INFORMATION
  Report Type: Spontaneous
  Country: US (occurrence: US)
  Receive Date: 20180502
  Receipt Date: 20180502
  Transmission Date: 20180711
  Serious: No
  Sender: FDA-Public Use
  Company Number: US-PFIZER INC-2018179413

PATIENT
  Age: 64 Year
  Sex: Male

DRUGS (2)
  1. LYRICA [Suspect]
     Active Substance: PREGABALIN
     Dosage: 1 DF, UNK
  2. LYRICA [Suspect]
     Active Substance: PREGABALIN
     Dosage: UNK, 3X/DAY

REACTIONS (1)
  - Fluid retention [Unknown]
